FAERS Safety Report 9912258 (Version 3)
Quarter: 2014Q1

REPORT INFORMATION
  Report Type: Spontaneous
  Country: IL (occurrence: IL)
  Receive Date: 20140220
  Receipt Date: 20140320
  Transmission Date: 20141002
  Serious: Yes (Hospitalization)
  Sender: FDA-Public Use
  Company Number: IL-ROCHE-1351999

PATIENT
  Sex: Male

DRUGS (6)
  1. LUCENTIS [Suspect]
     Indication: PRODUCT USED FOR UNKNOWN INDICATION
     Route: 050
     Dates: start: 201308
  2. LUCENTIS [Suspect]
     Route: 050
     Dates: start: 201309
  3. LUCENTIS [Suspect]
     Route: 050
     Dates: start: 201310
  4. LUCENTIS [Suspect]
     Dosage: IN BOTH EYES
     Route: 050
     Dates: start: 201401
  5. LUCENTIS [Suspect]
     Route: 050
     Dates: start: 20140209
  6. ASPIRIN [Concomitant]

REACTIONS (4)
  - Subcutaneous haematoma [Unknown]
  - Erythema [Unknown]
  - Drug eruption [Unknown]
  - Inappropriate schedule of drug administration [Unknown]
